FAERS Safety Report 8841269 (Version 3)
Quarter: 2012Q4

REPORT INFORMATION
  Report Type: 
  Country: DE (occurrence: JP)
  Receive Date: 20121015
  Receipt Date: 20121128
  Transmission Date: 20130627
  Serious: Yes (Life-Threatening, Hospitalization)
  Sender: FDA-Public Use
  Company Number: JP-FRI-1000039372

PATIENT
  Age: 87 Year
  Sex: Female
  Weight: 32 kg

DRUGS (4)
  1. MEMANTINE [Suspect]
     Indication: DEMENTIA ALZHEIMER^S TYPE
     Dosage: 5 mg
     Route: 048
     Dates: start: 20120927, end: 20121001
  2. MEMANTINE [Suspect]
     Indication: DEMENTIA ALZHEIMER^S TYPE
  3. YOKUKAN-SAN [Concomitant]
     Indication: DEMENTIA ALZHEIMER^S TYPE
     Dosage: 2.5 g
     Route: 048
     Dates: end: 20121001
  4. MEVALOTIN [Concomitant]
     Indication: HYPERCHOLESTEROLAEMIA
     Dosage: 5 mg
     Route: 048
     Dates: end: 20121001

REACTIONS (4)
  - Blood pressure increased [Recovered/Resolved]
  - Stress cardiomyopathy [Recovered/Resolved]
  - Pulmonary oedema [Recovered/Resolved]
  - Fall [Unknown]
